FAERS Safety Report 10101319 (Version 1)
Quarter: 2014Q2

REPORT INFORMATION
  Report Type: Spontaneous
  Country: US (occurrence: US)
  Receive Date: 20140424
  Receipt Date: 20140424
  Transmission Date: 20141212
  Serious: No
  Sender: FDA-Public Use
  Company Number: US-BAYER-2014-058889

PATIENT
  Age: 66 Year
  Sex: Female

DRUGS (2)
  1. MAGNEVIST [Suspect]
     Indication: JOINT INJURY
     Dosage: 15 ML, ONCE
     Dates: start: 20140411, end: 20140411
  2. MAGNEVIST [Suspect]
     Indication: NUCLEAR MAGNETIC RESONANCE IMAGING

REACTIONS (1)
  - Urticaria [Recovered/Resolved]
